FAERS Safety Report 4965725-8 (Version None)
Quarter: 2006Q2

REPORT INFORMATION
  Report Type: 
  Country: None (occurrence: None)
  Receive Date: 20060407
  Receipt Date: 20060328
  Transmission Date: 20061013
  Serious: Yes (Hospitalization, Other)
  Sender: FDA-Public Use
  Company Number: US-JNJFOC-20040200914

PATIENT
  Sex: Female
  Weight: 59.6 kg

DRUGS (30)
  1. REMICADE [Suspect]
     Route: 042
  2. REMICADE [Suspect]
     Route: 042
  3. REMICADE [Suspect]
     Route: 042
  4. REMICADE [Suspect]
     Route: 042
  5. REMICADE [Suspect]
     Route: 042
  6. REMICADE [Suspect]
     Route: 042
  7. REMICADE [Suspect]
     Indication: RHEUMATOID ARTHRITIS
     Route: 042
  8. CEPHALEXIN [Concomitant]
  9. COUMADIN [Concomitant]
  10. DIAZIDE [Concomitant]
  11. SYNTHROID [Concomitant]
     Dosage: EITHER 0.125 OR 0.150 MG DAILY
  12. POTASSIUM CHLORIDE [Concomitant]
  13. MENOCYCLINE [Concomitant]
  14. KEFLEX [Concomitant]
  15. PLAQUENIL [Concomitant]
  16. PREVACID [Concomitant]
  17. DIFLUCAN [Concomitant]
  18. PREDNISONE [Concomitant]
  19. ENDOCET [Concomitant]
  20. ENDOCET [Concomitant]
  21. METHOTREXATE [Concomitant]
  22. DURAGESIC-100 [Concomitant]
  23. ATENELOL [Concomitant]
  24. AMBIEN [Concomitant]
  25. CELEBREX [Concomitant]
  26. METHADONE HCL [Concomitant]
  27. FLEXERIL [Concomitant]
  28. SUDAFED 12 HOUR [Concomitant]
  29. HYDROXYCHLOROQUINE SULFATE [Concomitant]
  30. VALDECOXIB [Concomitant]

REACTIONS (35)
  - ANAEMIA [None]
  - ANOREXIA [None]
  - ARTHRITIS BACTERIAL [None]
  - ASTHENIA [None]
  - ATRIAL FIBRILLATION [None]
  - BLADDER OBSTRUCTION [None]
  - CANDIDURIA [None]
  - CELLULITIS [None]
  - CHEST DISCOMFORT [None]
  - CITROBACTER INFECTION [None]
  - DEEP VEIN THROMBOSIS [None]
  - DEHYDRATION [None]
  - DEPRESSION [None]
  - DYSPNOEA [None]
  - FALL [None]
  - HYPERHIDROSIS [None]
  - HYPERKALAEMIA [None]
  - HYPERTROPHY BREAST [None]
  - HYPOKALAEMIA [None]
  - HYPONATRAEMIA [None]
  - INFLUENZA LIKE ILLNESS [None]
  - INSOMNIA [None]
  - LEUKOPENIA [None]
  - LOCALISED INFECTION [None]
  - MENTAL STATUS CHANGES [None]
  - MUSCLE HAEMORRHAGE [None]
  - ORAL CANDIDIASIS [None]
  - PAIN [None]
  - PHARYNGOLARYNGEAL PAIN [None]
  - RENAL FAILURE [None]
  - RHEUMATOID ARTHRITIS [None]
  - SINUSITIS [None]
  - STAPHYLOCOCCAL INFECTION [None]
  - THERAPEUTIC RESPONSE DECREASED [None]
  - URINARY TRACT INFECTION [None]
